FAERS Safety Report 9686015 (Version 2)
Quarter: 2013Q4

REPORT INFORMATION
  Report Type: Spontaneous
  Country: US (occurrence: US)
  Receive Date: 20131113
  Receipt Date: 20131113
  Transmission Date: 20140711
  Serious: No
  Sender: FDA-Public Use
  Company Number: US-ALLERGAN-1302246US

PATIENT
  Age: 57 Year
  Sex: Female

DRUGS (3)
  1. COMBIGAN[R] [Suspect]
     Indication: GLAUCOMA
     Dosage: 2 GTT, BID
     Route: 047
     Dates: start: 20121221
  2. ZYRTEC                             /00884302/ [Concomitant]
     Indication: RHINITIS ALLERGIC
  3. LATANOPROST [Concomitant]
     Indication: GLAUCOMA

REACTIONS (2)
  - Rash generalised [Recovered/Resolved]
  - Type IV hypersensitivity reaction [Recovered/Resolved]
